FAERS Safety Report 21703974 (Version 1)
Quarter: 2022Q4

REPORT INFORMATION
  Report Type: Spontaneous
  Country: US (occurrence: US)
  Receive Date: 20221209
  Receipt Date: 20221209
  Transmission Date: 20230112
  Serious: Yes (Hospitalization, Other)
  Sender: FDA-Public Use
  Company Number: US-STRIDES ARCOLAB LIMITED-2022SP016381

PATIENT
  Age: 20 Year
  Sex: Male

DRUGS (13)
  1. ETOPOSIDE [Suspect]
     Active Substance: ETOPOSIDE
     Indication: Primary mediastinal large B-cell lymphoma recurrent
     Dosage: UNK UNK, CYCLICAL;6 CYCLES (EPOCH-R)
     Route: 065
  2. ETOPOSIDE [Suspect]
     Active Substance: ETOPOSIDE
     Dosage: UNK UNK, CYCLICAL; 2 CYCLES (ICE)
     Route: 065
  3. PREDNISOLONE [Suspect]
     Active Substance: PREDNISOLONE
     Indication: Primary mediastinal large B-cell lymphoma recurrent
     Dosage: UNK UNK, CYCLICAL; 6 CYCLES (EPOCH-R)
     Route: 065
  4. PREDNISOLONE [Suspect]
     Active Substance: PREDNISOLONE
     Dosage: UNK
     Route: 065
  5. PREDNISOLONE [Suspect]
     Active Substance: PREDNISOLONE
     Dosage: UNK; PREDNISOLONE WAS TAPERED
     Route: 065
  6. DOXORUBICIN [Suspect]
     Active Substance: DOXORUBICIN
     Indication: Primary mediastinal large B-cell lymphoma recurrent
     Dosage: UNK UNK, CYCLICAL; 6 CYCLES
     Route: 065
  7. CARBOPLATIN [Suspect]
     Active Substance: CARBOPLATIN
     Indication: Primary mediastinal large B-cell lymphoma recurrent
     Dosage: UNK UNK, CYCLICAL; TWO CYCLES
     Route: 065
  8. ONCOVIN [Suspect]
     Active Substance: VINCRISTINE SULFATE
     Indication: Primary mediastinal large B-cell lymphoma recurrent
     Dosage: UNK UNK, CYCLICAL; 6 CYCLES
     Route: 065
  9. CYCLOPHOSPHAMIDE [Suspect]
     Active Substance: CYCLOPHOSPHAMIDE
     Indication: Primary mediastinal large B-cell lymphoma recurrent
     Dosage: UNK UNK, CYCLICAL; 6 CYCLES
     Route: 065
  10. BRENTUXIMAB [Suspect]
     Active Substance: BRENTUXIMAB
     Indication: Primary mediastinal large B-cell lymphoma recurrent
     Dosage: UNK; TWO INFUSIONS
     Route: 065
  11. IFOSFAMIDE [Suspect]
     Active Substance: IFOSFAMIDE
     Indication: Primary mediastinal large B-cell lymphoma recurrent
     Dosage: UNK UNK, CYCLICAL; 2 CYCLES
     Route: 065
  12. MESNA [Suspect]
     Active Substance: MESNA
     Indication: Primary mediastinal large B-cell lymphoma recurrent
     Dosage: UNK, CYCLICAL; TWO CYCLES
     Route: 065
  13. RITUXIMAB [Suspect]
     Active Substance: RITUXIMAB
     Indication: Primary mediastinal large B-cell lymphoma recurrent
     Dosage: UNK UNK, CYCLICAL; 6 CYCLES
     Route: 065

REACTIONS (6)
  - Pulmonary veno-occlusive disease [Recovered/Resolved]
  - Pulmonary hypertension [Recovered/Resolved]
  - Right ventricular failure [Recovered/Resolved]
  - Neuropathy peripheral [Recovered/Resolved]
  - Drug ineffective [Unknown]
  - Off label use [Unknown]
